FAERS Safety Report 25067950 (Version 2)
Quarter: 2025Q1

REPORT INFORMATION
  Report Type: Spontaneous
  Country: GR (occurrence: GR)
  Receive Date: 20250312
  Receipt Date: 20250320
  Transmission Date: 20250409
  Serious: No
  Sender: MYLAN
  Company Number: GR-PFIZER INC-PV202500018462

PATIENT
  Sex: Male

DRUGS (1)
  1. ALPROSTADIL [Suspect]
     Active Substance: ALPROSTADIL
     Indication: Product used for unknown indication

REACTIONS (1)
  - No adverse event [Unknown]
